FAERS Safety Report 16043045 (Version 5)
Quarter: 2019Q2

REPORT INFORMATION
  Report Type: Report from Study
  Country: KR (occurrence: KR)
  Receive Date: 20190306
  Receipt Date: 20190610
  Transmission Date: 20190711
  Serious: Yes (Hospitalization)
  Sender: FDA-Public Use
  Company Number: KR-SA-2019SA026061

PATIENT
  Age: 67 Year
  Sex: Female

DRUGS (5)
  1. INSULIN GLARGINE [Suspect]
     Active Substance: INSULIN GLARGINE
     Dosage: 16 U, QD
     Route: 058
     Dates: start: 201901, end: 201901
  2. INSULIN GLARGINE [Suspect]
     Active Substance: INSULIN GLARGINE
     Indication: DIABETES MELLITUS
     Dosage: 14 U, QD
     Route: 058
     Dates: start: 201901
  3. NOVORAPID [Suspect]
     Active Substance: INSULIN ASPART
     Dosage: 6-0-4 U, TID
     Route: 058
     Dates: start: 201902, end: 2019
  4. NOVORAPID [Suspect]
     Active Substance: INSULIN ASPART
     Indication: DIABETES MELLITUS
     Dosage: 6-0-6 UNITS, TID
     Route: 058
     Dates: start: 2019
  5. NOVORAPID [Suspect]
     Active Substance: INSULIN ASPART
     Dosage: 6-6-4 U, TID
     Route: 058
     Dates: start: 201901, end: 201902

REACTIONS (8)
  - Blood glucose fluctuation [Unknown]
  - Hyperglycaemia [Recovered/Resolved]
  - Injection site bruising [Recovered/Resolved]
  - Product storage error [Unknown]
  - Hospitalisation [Unknown]
  - Injection site bruising [Not Recovered/Not Resolved]
  - Hyperglycaemia [Recovered/Resolved]
  - Injection site erythema [Recovered/Resolved]

NARRATIVE: CASE EVENT DATE: 201901
